FAERS Safety Report 5725141-8 (Version None)
Quarter: 2008Q2

REPORT INFORMATION
  Report Type: 
  Country: None (occurrence: None)
  Receive Date: 20080501
  Receipt Date: 20080424
  Transmission Date: 20081010
  Serious: Yes (Other)
  Sender: FDA-Public Use
  Company Number: US-MERCK-0804USA05232

PATIENT
  Age: 44 Year
  Sex: Female

DRUGS (6)
  1. SINGULAIR [Suspect]
     Indication: HYPERSENSITIVITY
     Route: 048
     Dates: end: 20080423
  2. SINGULAIR [Suspect]
     Route: 048
     Dates: start: 20080424
  3. ZYRTEC [Concomitant]
     Route: 065
  4. NASACORT [Concomitant]
     Route: 065
  5. YASMIN [Concomitant]
     Route: 065
  6. SYNTHROID [Concomitant]
     Route: 065

REACTIONS (3)
  - COUGH [None]
  - DRUG DOSE OMISSION [None]
  - GALLBLADDER DISORDER [None]
